FAERS Safety Report 16993935 (Version 1)
Quarter: 2019Q4

REPORT INFORMATION
  Report Type: Spontaneous
  Country: JP (occurrence: JP)
  Receive Date: 20191105
  Receipt Date: 20191105
  Transmission Date: 20200122
  Serious: Yes (Hospitalization, Other)
  Sender: FDA-Public Use
  Company Number: JP-VIIV HEALTHCARE LIMITED-JP2019JPN198497

PATIENT
  Age: 89 Year
  Sex: Male
  Weight: 39 kg

DRUGS (6)
  1. ISENTRESS [Concomitant]
     Active Substance: RALTEGRAVIR POTASSIUM
     Dosage: UNK
  2. EPIVIR [Suspect]
     Active Substance: LAMIVUDINE
     Dosage: UNK
     Route: 048
  3. SOLIFENACIN SUCCINATE. [Concomitant]
     Active Substance: SOLIFENACIN SUCCINATE
     Dosage: UNK
  4. NORVIR [Concomitant]
     Active Substance: RITONAVIR
     Dosage: UNK
  5. REYATAZ [Concomitant]
     Active Substance: ATAZANAVIR SULFATE
     Dosage: UNK
  6. SILODOSIN. [Concomitant]
     Active Substance: SILODOSIN
     Dosage: UNK

REACTIONS (2)
  - Fall [Unknown]
  - Femoral neck fracture [Unknown]
